FAERS Safety Report 4758935-6 (Version None)
Quarter: 2005Q3

REPORT INFORMATION
  Report Type: 
  Country: None (occurrence: None)
  Receive Date: 20050901
  Receipt Date: 20050718
  Transmission Date: 20060218
  Serious: Yes (Hospitalization)
  Sender: FDA-Public Use
  Company Number: 200512432FR

PATIENT
  Age: 22 Year
  Sex: Female

DRUGS (16)
  1. CORTANCYL [Suspect]
     Route: 048
  2. FLAGYL [Suspect]
     Dates: start: 20050422, end: 20050427
  3. IMUREL [Suspect]
     Route: 048
     Dates: start: 20031015, end: 20050415
  4. SANDOSTATIN [Suspect]
     Dates: start: 20050303, end: 20050315
  5. LEVOTHYROXINE SODIUM [Concomitant]
     Dates: end: 20050420
  6. ISOPTIN [Concomitant]
     Dates: end: 20050420
  7. EUPRESSYL [Concomitant]
     Dates: end: 20050420
  8. CORVASAL [Concomitant]
     Dates: end: 20050420
  9. SPECIAFOLDINE [Concomitant]
     Dates: end: 20050420
  10. CLONAZEPAM [Concomitant]
     Dates: end: 20050420
  11. NOROXIN [Concomitant]
     Dates: end: 20050420
  12. DEBRIDAT [Concomitant]
     Dates: end: 20050420
  13. TRACLEER [Concomitant]
     Dates: end: 20050420
  14. CALCIUM WITH VITAMIN D [Concomitant]
     Dates: end: 20050420
  15. FOSAMAX [Concomitant]
     Dates: end: 20050420
  16. AUGMENTIN '125' [Concomitant]
     Dates: start: 20050422, end: 20050427

REACTIONS (3)
  - CHOLELITHIASIS [None]
  - CYTOLYTIC HEPATITIS [None]
  - PANCREATITIS ACUTE [None]
